FAERS Safety Report 24677539 (Version 1)
Quarter: 2024Q4

REPORT INFORMATION
  Report Type: Report from Study
  Country: BR (occurrence: BR)
  Receive Date: 20241129
  Receipt Date: 20241129
  Transmission Date: 20250115
  Serious: Yes (Other)
  Sender: SANOFI AVENTIS
  Company Number: BR-SA-2024SA284138

PATIENT
  Age: 31 Year
  Sex: Female
  Weight: 110 kg

DRUGS (3)
  1. AGALSIDASE BETA [Suspect]
     Active Substance: AGALSIDASE BETA
     Indication: Fabry^s disease
     Dosage: 2 DF (2 VIALS), QOW
     Route: 042
     Dates: start: 20240816, end: 20240816
  2. ENALAPRIL MALEATE [Concomitant]
     Active Substance: ENALAPRIL MALEATE
     Indication: Renal disorder
     Dosage: 1 DF, QD (1 UG/G 1 DOSE EVERY 1 DAY)
  3. SIMVASTATIN [Concomitant]
     Active Substance: SIMVASTATIN
     Indication: Hypercholesterolaemia
     Dosage: 1 DF, QD (1 UG/G 1 DOSE EVERY 1 DAY)

REACTIONS (4)
  - Nephrolithiasis [Recovered/Resolved]
  - Back pain [Recovered/Resolved]
  - Influenza like illness [Recovered/Resolved]
  - Wrong technique in product usage process [Unknown]

NARRATIVE: CASE EVENT DATE: 20240101
